FAERS Safety Report 14190753 (Version 4)
Quarter: 2018Q1

REPORT INFORMATION
  Report Type: Spontaneous
  Country: JP (occurrence: JP)
  Receive Date: 20171115
  Receipt Date: 20180221
  Transmission Date: 20180508
  Serious: Yes (Hospitalization, Other)
  Sender: FDA-Public Use
  Company Number: JP-GLAXOSMITHKLINE-JP2017JPN172325

PATIENT
  Age: 52 Year
  Sex: Female
  Weight: 55 kg

DRUGS (7)
  1. BROTIZOLAM [Concomitant]
     Active Substance: BROTIZOLAM
     Dosage: 1 DF, 1D
  2. LORAZEPAM. [Concomitant]
     Active Substance: LORAZEPAM
     Dosage: 1.5 MG, 1D
  3. LAMICTAL [Suspect]
     Active Substance: LAMOTRIGINE
     Indication: MOOD SWINGS
     Dosage: 25 MG, 1D
     Route: 048
     Dates: start: 20170928, end: 20171028
  4. RISPERDAL [Concomitant]
     Active Substance: RISPERIDONE
     Dosage: 1 ML, 1D
  5. FLUNITRAZEPAM [Concomitant]
     Active Substance: FLUNITRAZEPAM
     Dosage: 3 MG, 1D
  6. TASMOLIN [Concomitant]
     Active Substance: BIPERIDEN
     Dosage: 2 MG, 1D
  7. RIVOTRIL [Concomitant]
     Active Substance: CLONAZEPAM
     Indication: ANXIETY
     Dosage: 0.5 MG, PRN

REACTIONS (10)
  - Drug reaction with eosinophilia and systemic symptoms [Not Recovered/Not Resolved]
  - Lip swelling [Unknown]
  - Dermatitis [Unknown]
  - Ocular hyperaemia [Unknown]
  - Erythema [Unknown]
  - Erythema of eyelid [Unknown]
  - Lip erosion [Unknown]
  - Lymphadenopathy [Unknown]
  - Drug eruption [Not Recovered/Not Resolved]
  - Oral mucosa erosion [Unknown]

NARRATIVE: CASE EVENT DATE: 20171028
